FAERS Safety Report 23074321 (Version 1)
Quarter: 2023Q4

REPORT INFORMATION
  Report Type: Spontaneous
  Country: US (occurrence: US)
  Receive Date: 20231017
  Receipt Date: 20231017
  Transmission Date: 20240110
  Serious: No
  Sender: FDA-Public Use
  Company Number: US-AMNEAL PHARMACEUTICALS-2023-AMRX-01312

PATIENT
  Sex: Male

DRUGS (1)
  1. AZELASTINE HYDROCHLORIDE [Suspect]
     Active Substance: AZELASTINE HYDROCHLORIDE
     Indication: Product used for unknown indication
     Dosage: 0.1 PERCENT (137 MCG PER SPRAY), USE 2 SPRAYS IN EACH NOSTRIL IN THE MORNING AND 2 IN THE EVENING
     Route: 045

REACTIONS (2)
  - Product odour abnormal [Unknown]
  - No adverse event [Unknown]
